FAERS Safety Report 15018818 (Version 1)
Quarter: 2018Q2

REPORT INFORMATION
  Report Type: Spontaneous
  Country: US (occurrence: US)
  Receive Date: 20180616
  Receipt Date: 20180616
  Transmission Date: 20180711
  Serious: No
  Sender: FDA-Public Use
  Company Number: US-JNJFOC-20180542250

PATIENT
  Age: 57 Year
  Sex: Female
  Weight: 58.97 kg

DRUGS (2)
  1. WOMENS ROGAINE UNSCENTED [Suspect]
     Active Substance: MINOXIDIL
     Indication: ALOPECIA
     Dosage: HALF CAPFUL ON EACH SIDE OF HEAD, A HALF CAPFUL ON THE TOP OF HEAD, A FULL CAPFUL ON BACK OF HEAD
     Route: 061
     Dates: start: 20180526
  2. WOMENS ROGAINE UNSCENTED [Suspect]
     Active Substance: MINOXIDIL
     Route: 061

REACTIONS (3)
  - Off label use [Unknown]
  - Overdose [Unknown]
  - Product use in unapproved indication [Unknown]
